FAERS Safety Report 11102237 (Version 9)
Quarter: 2019Q1

REPORT INFORMATION
  Report Type: Report from Study
  Country: CA (occurrence: CA)
  Receive Date: 20150511
  Receipt Date: 20190124
  Transmission Date: 20190417
  Serious: Yes (Other)
  Sender: FDA-Public Use
  Company Number: CA-ROCHE-1265544

PATIENT
  Age: 53 Year
  Sex: Female
  Weight: 53.4 kg

DRUGS (7)
  1. METHYLPREDNISOLONE. [Concomitant]
     Active Substance: METHYLPREDNISOLONE
     Indication: PREMEDICATION
     Route: 042
     Dates: start: 20120621
  2. DIPHENHYDRAMINE HCL [Concomitant]
     Active Substance: DIPHENHYDRAMINE HYDROCHLORIDE
     Indication: PREMEDICATION
     Route: 048
     Dates: start: 20120621
  3. TYLENOL [Concomitant]
     Active Substance: ACETAMINOPHEN
  4. SYNTHROID [Concomitant]
     Active Substance: LEVOTHYROXINE SODIUM
  5. ARAVA [Concomitant]
     Active Substance: LEFLUNOMIDE
     Route: 065
  6. RITUXAN [Suspect]
     Active Substance: RITUXIMAB
     Indication: RHEUMATOID ARTHRITIS
     Dosage: LAST DOSE :  30/JUL/2013
     Route: 042
     Dates: start: 20120621
  7. ACETAMINOPHEN. [Concomitant]
     Active Substance: ACETAMINOPHEN
     Indication: PREMEDICATION
     Route: 048
     Dates: start: 20120621

REACTIONS (19)
  - Eye inflammation [Unknown]
  - Erythema [Recovered/Resolved]
  - Paraesthesia [Unknown]
  - Arthralgia [Unknown]
  - Hypothyroidism [Unknown]
  - Anaemia [Not Recovered/Not Resolved]
  - Tooth disorder [Unknown]
  - Blood pressure systolic increased [Unknown]
  - Palpitations [Unknown]
  - Mouth injury [Not Recovered/Not Resolved]
  - Infusion related reaction [Unknown]
  - Blood pressure fluctuation [Unknown]
  - Eye irritation [Unknown]
  - Oxygen saturation decreased [Unknown]
  - Somnolence [Unknown]
  - Hypothyroidism [Not Recovered/Not Resolved]
  - Feeling hot [Not Recovered/Not Resolved]
  - Hypoaesthesia [Recovered/Resolved]
  - Heart rate decreased [Unknown]

NARRATIVE: CASE EVENT DATE: 2013
